FAERS Safety Report 13551635 (Version 1)
Quarter: 2017Q2

REPORT INFORMATION
  Report Type: Spontaneous
  Country: US (occurrence: US)
  Receive Date: 20170516
  Receipt Date: 20170516
  Transmission Date: 20170830
  Serious: No
  Sender: FDA-Public Use
  Company Number: US-EPIC PHARMA LLC-2017EPC00041

PATIENT
  Age: 70 Year
  Sex: Female
  Weight: 53.52 kg

DRUGS (9)
  1. VITAMIN D3 [Concomitant]
     Active Substance: CHOLECALCIFEROL
     Dosage: 1 DOSAGE UNITS, EVERY 48 HOURS
  2. CO-Q10 [Concomitant]
     Dosage: 1 DOSAGE UNITS, EVERY 48 HOURS
  3. VITAMIN B12 [Concomitant]
     Active Substance: CYANOCOBALAMIN
     Dosage: 1 DOSAGE UNITS, EVERY 48 HOURS
  4. AMLODIPINE [Suspect]
     Active Substance: AMLODIPINE BESYLATE
     Indication: BLOOD PRESSURE ABNORMAL
     Dosage: 5 MG, 1X/DAY
     Route: 048
     Dates: start: 20170307
  5. AMITIZA [Concomitant]
     Active Substance: LUBIPROSTONE
     Dosage: 8 ?G, 2X/DAY
  6. AMLODIPINE [Suspect]
     Active Substance: AMLODIPINE BESYLATE
     Indication: CARDIAC DISORDER
  7. CALCIUM [Concomitant]
     Active Substance: CALCIUM
     Dosage: 1 DOSAGE UNITS, EVERY 48 HOURS
  8. POTASSIUM [Concomitant]
     Active Substance: POTASSIUM
     Dosage: 10 MEQ, 2X/DAY
  9. MAGNESIUM [Concomitant]
     Active Substance: MAGNESIUM
     Dosage: 400 MG, 1X/DAY

REACTIONS (5)
  - Memory impairment [Not Recovered/Not Resolved]
  - Tongue discomfort [Not Recovered/Not Resolved]
  - Loss of personal independence in daily activities [Unknown]
  - Dizziness [Not Recovered/Not Resolved]
  - Confusional state [Not Recovered/Not Resolved]

NARRATIVE: CASE EVENT DATE: 20170308
